FAERS Safety Report 24610591 (Version 1)
Quarter: 2024Q4

REPORT INFORMATION
  Report Type: Spontaneous
  Country: CA (occurrence: CA)
  Receive Date: 20241112
  Receipt Date: 20241112
  Transmission Date: 20250115
  Serious: Yes (Death, Other)
  Sender: MERCK
  Company Number: CA-009507513-2411CAN003054

PATIENT
  Age: 46 Year
  Sex: Female
  Weight: 113 kg

DRUGS (5)
  1. KEYTRUDA [Suspect]
     Active Substance: PEMBROLIZUMAB
     Indication: Breast neoplasm
     Dosage: 200 MILLIGRAM, Q3W
     Route: 042
  2. CELLCEPT [Concomitant]
     Active Substance: MYCOPHENOLATE MOFETIL
     Route: 065
  3. METHYLPREDNISOLONE [Concomitant]
     Active Substance: METHYLPREDNISOLONE
     Route: 065
  4. PANTOPRAZOLE [Concomitant]
     Active Substance: PANTOPRAZOLE
     Route: 065
  5. PREDNISONE [Concomitant]
     Active Substance: PREDNISONE
     Route: 065

REACTIONS (5)
  - Alanine aminotransferase increased [Fatal]
  - Aspartate aminotransferase increased [Fatal]
  - Autoimmune hepatitis [Fatal]
  - Blood bilirubin increased [Fatal]
  - General physical health deterioration [Fatal]
